FAERS Safety Report 9708357 (Version 2)
Quarter: 2013Q4

REPORT INFORMATION
  Report Type: Spontaneous
  Country: AU (occurrence: AU)
  Receive Date: 20131125
  Receipt Date: 20131125
  Transmission Date: 20140711
  Serious: Yes (Other)
  Sender: FDA-Public Use
  Company Number: AU-PFIZER INC-2013332644

PATIENT
  Age: 57 Year
  Sex: Male

DRUGS (4)
  1. FLUOROURACIL [Suspect]
     Indication: COLORECTAL CANCER
     Dosage: 780 MG BOLUS DOSE (DAY 1)
     Route: 040
  2. FLUOROURACIL [Suspect]
     Dosage: 1170 MG, OVER 48 HOURS
     Route: 041
  3. OXALIPLATIN [Concomitant]
     Dosage: 165 MG (DAY 1)
  4. LEUCOVORIN [Concomitant]
     Indication: COLORECTAL CANCER
     Dosage: 390 MG, (DAY 1 + 2)

REACTIONS (2)
  - Papilloedema [Recovered/Resolved]
  - Optic neuropathy [Recovered/Resolved]
